FAERS Safety Report 13338472 (Version 2)
Quarter: 2017Q1

REPORT INFORMATION
  Report Type: Spontaneous
  Country: US (occurrence: US)
  Receive Date: 20170315
  Receipt Date: 20170321
  Transmission Date: 20170428
  Serious: Yes (Other)
  Sender: FDA-Public Use
  Company Number: US-JNJFOC-20170118123

PATIENT
  Sex: Female
  Weight: 54.89 kg

DRUGS (3)
  1. REMICADE [Suspect]
     Active Substance: INFLIXIMAB
     Indication: CROHN^S DISEASE
     Route: 042
  2. REMICADE [Suspect]
     Active Substance: INFLIXIMAB
     Indication: CROHN^S DISEASE
     Route: 042
  3. FERROUS SULFATE. [Concomitant]
     Active Substance: FERROUS SULFATE
     Indication: ANAEMIA
     Route: 065

REACTIONS (5)
  - Intestinal anastomosis [Unknown]
  - Psoriasis [Recovering/Resolving]
  - Intestinal stenosis [Unknown]
  - Erythema nodosum [Recovering/Resolving]
  - Crohn^s disease [Unknown]
